FAERS Safety Report 21283562 (Version 2)
Quarter: 2022Q3

REPORT INFORMATION
  Report Type: Report from Study
  Country: CA (occurrence: CA)
  Receive Date: 20220901
  Receipt Date: 20220906
  Transmission Date: 20221027
  Serious: Yes (Death, Other)
  Sender: FDA-Public Use
  Company Number: CA-GILEAD-2022-0585943

PATIENT
  Sex: Female

DRUGS (15)
  1. SACITUZUMAB GOVITECAN [Suspect]
     Active Substance: SACITUZUMAB GOVITECAN
     Indication: Triple negative breast cancer
     Dosage: 860 MG C1D1
     Route: 042
     Dates: start: 20220520
  2. SACITUZUMAB GOVITECAN [Suspect]
     Active Substance: SACITUZUMAB GOVITECAN
     Dosage: C1D8
     Route: 042
     Dates: start: 20220527
  3. SACITUZUMAB GOVITECAN [Suspect]
     Active Substance: SACITUZUMAB GOVITECAN
     Dosage: 860 MG, C2D1
     Route: 042
     Dates: start: 20220722, end: 20220722
  4. PANTOPRAZOLE [Concomitant]
     Active Substance: PANTOPRAZOLE
     Dosage: 40MG PER - 2X DAILY
  5. PANTOPRAZOLE [Concomitant]
     Active Substance: PANTOPRAZOLE
     Dosage: 40 MG TWICE DAILY PO (PRE-MEDICATION PRIOR TO TRODELVY)
  6. PANTOPRAZOLE [Concomitant]
     Active Substance: PANTOPRAZOLE
     Dosage: 40MG PER - 2X DAILY
  7. ELIQUIS [Concomitant]
     Active Substance: APIXABAN
     Dosage: 5MG PER - 2X DAILY
  8. ELIQUIS [Concomitant]
     Active Substance: APIXABAN
     Dosage: 5 MG PO (PRE-MEDICATION PRIOR TO TRODELVY)
  9. ELIQUIS [Concomitant]
     Active Substance: APIXABAN
     Dosage: 5MG PER - 2X DAILY
  10. MORPHINE [Concomitant]
     Active Substance: MORPHINE
     Dosage: 10MG PER - 2X DAILY
  11. MORPHINE [Concomitant]
     Active Substance: MORPHINE
     Dosage: 10 MG PO (PRE-MEDICATION PRIOR TO TRODELVY)
  12. MORPHINE [Concomitant]
     Active Substance: MORPHINE
     Dosage: 10MG PER - 2X DAILY
  13. SENOKOT [Concomitant]
     Active Substance: SENNOSIDES
     Dosage: 8.6MG - 2X DAILY
  14. SENOKOT [Concomitant]
     Active Substance: SENNOSIDES
     Dosage: 8.6MG - 2X DAILY PO (PRE-MEDICATION PRIOR TO TRODELVY)
  15. SENOKOT [Concomitant]
     Active Substance: SENNOSIDES
     Dosage: 8.6MG - 2X DAILY

REACTIONS (4)
  - Death [Fatal]
  - Full blood count decreased [Unknown]
  - Neutrophil count abnormal [Unknown]
  - Malaise [Unknown]

NARRATIVE: CASE EVENT DATE: 20220101
